FAERS Safety Report 5573981-0 (Version None)
Quarter: 2007Q4

REPORT INFORMATION
  Report Type: 
  Country: None (occurrence: None)
  Receive Date: 20071226
  Receipt Date: 20071218
  Transmission Date: 20080405
  Serious: Yes (Hospitalization, Other)
  Sender: FDA-Public Use
  Company Number: GB-ABBOTT-07P-167-0430766-00

PATIENT
  Age: 85 Year
  Sex: Male

DRUGS (9)
  1. KLARICID [Suspect]
     Indication: DRUG USE FOR UNKNOWN INDICATION
     Dates: start: 20071107, end: 20071113
  2. AMOXICILLIN [Concomitant]
     Indication: DRUG USE FOR UNKNOWN INDICATION
     Dates: start: 20071107, end: 20071113
  3. SIMVASTATIN [Concomitant]
     Indication: DRUG USE FOR UNKNOWN INDICATION
     Dates: start: 20071113
  4. THIAMINE [Concomitant]
     Indication: DRUG USE FOR UNKNOWN INDICATION
     Dates: start: 20071113
  5. ACETYLSALICYLIC ACID SRT [Concomitant]
     Indication: DRUG USE FOR UNKNOWN INDICATION
  6. PERICIAZINE [Concomitant]
     Indication: DRUG USE FOR UNKNOWN INDICATION
  7. BI PREDONIUM [Concomitant]
     Indication: DRUG USE FOR UNKNOWN INDICATION
     Dosage: MANE
     Dates: start: 20071116
  8. BUDESONIDE W/FORMOTEROL FUMARATE [Concomitant]
     Indication: DRUG USE FOR UNKNOWN INDICATION
  9. PARACETAMOL [Concomitant]
     Indication: DRUG USE FOR UNKNOWN INDICATION
     Dates: start: 20071106

REACTIONS (1)
  - RENAL FAILURE ACUTE [None]
